FAERS Safety Report 25465332 (Version 1)
Quarter: 2025Q2

REPORT INFORMATION
  Report Type: Spontaneous
  Country: CN (occurrence: CN)
  Receive Date: 20250622
  Receipt Date: 20250622
  Transmission Date: 20250716
  Serious: Yes (Life-Threatening, Hospitalization, Other)
  Sender: ELI LILLY AND COMPANY
  Company Number: CN-CHEPLA-2025007311

PATIENT
  Age: 71 Year
  Sex: Male

DRUGS (4)
  1. GEMCITABINE HYDROCHLORIDE [Suspect]
     Active Substance: GEMCITABINE HYDROCHLORIDE
     Indication: Squamous cell carcinoma
     Route: 065
     Dates: start: 20241021, end: 20241205
  2. SINTILIMAB [Suspect]
     Active Substance: SINTILIMAB
     Indication: Squamous cell carcinoma
     Route: 065
     Dates: start: 20241021, end: 20241205
  3. ASPIRIN [Concomitant]
     Active Substance: ASPIRIN
     Indication: Product used for unknown indication
     Route: 065
  4. ATORVASTATIN [Concomitant]
     Active Substance: ATORVASTATIN
     Indication: Product used for unknown indication
     Route: 065

REACTIONS (14)
  - Shock [Unknown]
  - Loss of consciousness [Unknown]
  - Dyspnoea [Unknown]
  - Acute myocardial infarction [Unknown]
  - Tachycardia [Unknown]
  - Arthralgia [Unknown]
  - Chest discomfort [Unknown]
  - Mental impairment [Unknown]
  - Left ventricular dysfunction [Unknown]
  - Ectopic atrial rhythm [Unknown]
  - QRS axis abnormal [Unknown]
  - Bundle branch block right [Unknown]
  - Electrocardiogram low voltage [Unknown]
  - Electrocardiogram ST segment [Unknown]

NARRATIVE: CASE EVENT DATE: 20241128
